FAERS Safety Report 24248222 (Version 2)
Quarter: 2025Q1

REPORT INFORMATION
  Report Type: Spontaneous
  Country: SA (occurrence: SA)
  Receive Date: 20240826
  Receipt Date: 20250225
  Transmission Date: 20250409
  Serious: Yes (Death, Other)
  Sender: AUROBINDO
  Company Number: SA-AUROBINDO-AUR-APL-2024-041232

PATIENT
  Age: 2 Month
  Sex: Female

DRUGS (2)
  1. VALGANCICLOVIR [Suspect]
     Active Substance: VALGANCICLOVIR
     Indication: Cytomegalovirus infection
     Dosage: 30 MILLIGRAM/KILOGRAM, ONCE A DAY
     Route: 065
  2. GANCICLOVIR [Suspect]
     Active Substance: GANCICLOVIR
     Indication: Cytomegalovirus infection
     Dosage: 15 MILLIGRAM/KILOGRAM, ONCE A DAY
     Route: 042

REACTIONS (1)
  - Drug ineffective [Fatal]
